FAERS Safety Report 20306482 (Version 1)
Quarter: 2022Q1

REPORT INFORMATION
  Report Type: Spontaneous
  Country: US (occurrence: None)
  Receive Date: 20220106
  Receipt Date: 20220106
  Transmission Date: 20220423
  Serious: Yes (Life-Threatening, Other)
  Sender: FDA-Public Use
  Company Number: None

PATIENT
  Age: 59 Year
  Sex: Male
  Weight: 98.55 kg

DRUGS (12)
  1. INFLECTRA [Suspect]
     Active Substance: INFLIXIMAB-DYYB
     Indication: Colitis ulcerative
     Dosage: OTHER FREQUENCY : EVERY 8 WEEKS;?
     Route: 042
  2. ROSUVASTATIN [Concomitant]
  3. NASACORT ALLERGY [Concomitant]
  4. OMEPRAZOLE [Concomitant]
  5. OMEGA 3 [Concomitant]
     Active Substance: CAPSAICIN
  6. PROBIOTICS NOS [Concomitant]
     Active Substance: PROBIOTICS NOS
  7. ginger supplement [Concomitant]
  8. super lysine [Concomitant]
  9. VITAMIN C [Concomitant]
     Active Substance: ASCORBIC ACID
  10. VITAMIN D3 [Concomitant]
     Active Substance: CHOLECALCIFEROL
  11. ZINC [Concomitant]
  12. DIPHENHYDRAMINE [Concomitant]

REACTIONS (9)
  - Myalgia [None]
  - Pain in extremity [None]
  - Pain in extremity [None]
  - Musculoskeletal disorder [None]
  - Joint swelling [None]
  - Dyspnoea [None]
  - Chest pain [None]
  - Chest discomfort [None]
  - Back pain [None]
